FAERS Safety Report 6312083-2 (Version None)
Quarter: 2009Q3

REPORT INFORMATION
  Report Type: 
  Country: None (occurrence: None)
  Receive Date: 20090813
  Receipt Date: 20090813
  Transmission Date: 20100115
  Serious: Yes (Life-Threatening, Hospitalization, Other)
  Sender: FDA-Public Use
  Company Number: None

PATIENT
  Age: 3 Year
  Sex: Male
  Weight: 16.2 kg

DRUGS (1)
  1. SIROLIMUS 1MG/ML [Suspect]
     Indication: NEUROFIBROMATOSIS
     Dosage: 1.5MG BID PO
     Route: 048
     Dates: start: 20081205, end: 20090314

REACTIONS (4)
  - ACUTE RESPIRATORY DISTRESS SYNDROME [None]
  - GENERAL PHYSICAL HEALTH DETERIORATION [None]
  - RESPIRATORY SYNCYTIAL VIRUS INFECTION [None]
  - STENOTROPHOMONAS INFECTION [None]
